FAERS Safety Report 17319817 (Version 1)
Quarter: 2020Q1

REPORT INFORMATION
  Report Type: Spontaneous
  Country: DE (occurrence: DE)
  Receive Date: 20200125
  Receipt Date: 20200125
  Transmission Date: 20200409
  Serious: Yes (Death, Other)
  Sender: FDA-Public Use
  Company Number: NVSC2020DE018602

PATIENT

DRUGS (3)
  1. PEMBROLIZUMAB. [Suspect]
     Active Substance: PEMBROLIZUMAB
     Indication: LUNG CARCINOMA CELL TYPE UNSPECIFIED STAGE IV
     Dosage: UNK
     Route: 065
  2. NINTEDANIB [Suspect]
     Active Substance: NINTEDANIB
     Indication: LUNG CARCINOMA CELL TYPE UNSPECIFIED STAGE IV
     Dosage: 5 CYCLES
     Route: 065
     Dates: start: 20170602, end: 20170918
  3. DOCETAXEL. [Suspect]
     Active Substance: DOCETAXEL
     Indication: LUNG CARCINOMA CELL TYPE UNSPECIFIED STAGE IV
     Dosage: 5 OT, CYCLIC
     Route: 065
     Dates: start: 20170602, end: 20170918

REACTIONS (7)
  - Adverse event [Unknown]
  - Nausea [Unknown]
  - Vomiting [Unknown]
  - Death [Fatal]
  - Polyneuropathy [Unknown]
  - Malignant neoplasm progression [Unknown]
  - Poisoning [Unknown]

NARRATIVE: CASE EVENT DATE: 2017
